FAERS Safety Report 18907277 (Version 2)
Quarter: 2021Q2

REPORT INFORMATION
  Report Type: Report from Study
  Country: CA (occurrence: CA)
  Receive Date: 20210218
  Receipt Date: 20210416
  Transmission Date: 20210717
  Serious: Yes (Other)
  Sender: FDA-Public Use
  Company Number: CA-JNJFOC-20200618604

PATIENT
  Age: 48 Year
  Sex: Female
  Weight: 66.28 kg

DRUGS (2)
  1. REMICADE [Suspect]
     Active Substance: INFLIXIMAB
     Route: 042
  2. REMICADE [Suspect]
     Active Substance: INFLIXIMAB
     Indication: CROHN^S DISEASE
     Dosage: ON 12?JUN?2020, THE PATIENT RECEIVED HER 63 RD INFUSION WITH 600 MG DOSE OF INFLIXIMAB, RECOMBINANT
     Route: 042
     Dates: start: 20140611

REACTIONS (7)
  - Colitis [Recovered/Resolved]
  - Clostridium difficile infection [Recovered/Resolved]
  - Sinusitis [Not Recovered/Not Resolved]
  - Sinus polyp [Unknown]
  - Obstructive airways disorder [Unknown]
  - Nasopharyngitis [Unknown]
  - Fatigue [Unknown]

NARRATIVE: CASE EVENT DATE: 202010
